FAERS Safety Report 9112250 (Version 1)
Quarter: 2013Q1

REPORT INFORMATION
  Report Type: Spontaneous
  Country: US (occurrence: US)
  Receive Date: 20130219
  Receipt Date: 20130219
  Transmission Date: 20140127
  Serious: No
  Sender: FDA-Public Use
  Company Number: US-BRISTOL-MYERS SQUIBB COMPANY-17017575

PATIENT
  Age: 35 Year
  Sex: Female
  Weight: 140.59 kg

DRUGS (3)
  1. ORENCIA [Suspect]
     Indication: RHEUMATOID ARTHRITIS
     Dosage: DATE OF LAST INFUSION: ^24AUG2012^
     Route: 042
     Dates: start: 201110
  2. METHOTREXATE [Concomitant]
  3. PREDNISONE [Concomitant]

REACTIONS (1)
  - Rheumatoid arthritis [Unknown]
